FAERS Safety Report 6610833-9 (Version None)
Quarter: 2010Q1

REPORT INFORMATION
  Report Type: 
  Country: None (occurrence: None)
  Receive Date: 20100219
  Receipt Date: 20100129
  Transmission Date: 20100710
  Serious: Yes (Other)
  Sender: FDA-Public Use
  Company Number: 508592

PATIENT
  Age: 56 Year
  Sex: Male

DRUGS (2)
  1. OXALIPLATIN [Suspect]
  2. (RALTITREXED DISODIUM) [Suspect]
     Dosage: 3 G/M2

REACTIONS (1)
  - CYTOLYTIC HEPATITIS [None]
